FAERS Safety Report 13508148 (Version 1)
Quarter: 2017Q2

REPORT INFORMATION
  Report Type: Spontaneous
  Country: US (occurrence: US)
  Receive Date: 20170503
  Receipt Date: 20170503
  Transmission Date: 20170830
  Serious: No
  Sender: FDA-Public Use
  Company Number: None

PATIENT
  Age: 75 Year
  Sex: Female
  Weight: 58.97 kg

DRUGS (7)
  1. SIMVASTATIN. [Concomitant]
     Active Substance: SIMVASTATIN
  2. ANORO ELLIPTA [Suspect]
     Active Substance: UMECLIDINIUM BROMIDE\VILANTEROL TRIFENATATE
     Indication: CHRONIC OBSTRUCTIVE PULMONARY DISEASE
     Route: 048
     Dates: start: 20170216, end: 20170412
  3. PANTOPRAZOLE SODIUM. [Concomitant]
     Active Substance: PANTOPRAZOLE SODIUM
  4. VITAMIN D [Concomitant]
     Active Substance: CHOLECALCIFEROL
  5. CALCIUM [Concomitant]
     Active Substance: CALCIUM
  6. LOSARTAN. [Concomitant]
     Active Substance: LOSARTAN
  7. GARLIC. [Concomitant]
     Active Substance: GARLIC

REACTIONS (6)
  - Sleep disorder [None]
  - Pain in extremity [None]
  - Musculoskeletal pain [None]
  - Hypoaesthesia [None]
  - Bone pain [None]
  - Arthralgia [None]

NARRATIVE: CASE EVENT DATE: 20170413
